FAERS Safety Report 6386164-1 (Version None)
Quarter: 2009Q4

REPORT INFORMATION
  Report Type: 
  Country: None (occurrence: None)
  Receive Date: 20091002
  Receipt Date: 20090128
  Transmission Date: 20100525
  Serious: No
  Sender: FDA-Public Use
  Company Number: US-ASTRAZENECA-2008UW28970

PATIENT
  Age: 67 Year
  Sex: Female
  Weight: 107.5 kg

DRUGS (3)
  1. ARIMIDEX [Suspect]
     Indication: BREAST CANCER
     Route: 048
     Dates: start: 20060101
  2. ANTIBIOTICS [Interacting]
  3. VITAMINS [Concomitant]

REACTIONS (6)
  - ARTHRALGIA [None]
  - DRUG INTERACTION [None]
  - ILL-DEFINED DISORDER [None]
  - LOW DENSITY LIPOPROTEIN INCREASED [None]
  - TREMOR [None]
  - WEIGHT INCREASED [None]
